FAERS Safety Report 4370661-4 (Version None)
Quarter: 2004Q2

REPORT INFORMATION
  Report Type: 
  Country: None (occurrence: None)
  Receive Date: 20040526
  Receipt Date: 20040513
  Transmission Date: 20050107
  Serious: Yes (Hospitalization, Other)
  Sender: FDA-Public Use
  Company Number: HQWYE879913MAY04

PATIENT
  Age: 20 Month
  Sex: Female

DRUGS (1)
  1. CHILDREN'S ADVIL [Suspect]
     Indication: PYREXIA
     Route: 048
     Dates: start: 20040102, end: 20040102

REACTIONS (7)
  - CONDITION AGGRAVATED [None]
  - LYMPHADENOPATHY [None]
  - NASOPHARYNGITIS [None]
  - SCAB [None]
  - TACHYCARDIA [None]
  - TONSILLITIS [None]
  - VARICELLA [None]
